FAERS Safety Report 13257828 (Version 1)
Quarter: 2017Q1

REPORT INFORMATION
  Report Type: Report from Study
  Country: US (occurrence: US)
  Receive Date: 20170221
  Receipt Date: 20170221
  Transmission Date: 20170428
  Serious: Yes (Other)
  Sender: FDA-Public Use
  Company Number: US-GLAXOSMITHKLINE-US2017GSK023455

PATIENT
  Sex: Female

DRUGS (1)
  1. PARACETAMOL + ASPIRIN + CAFFEINE [Suspect]
     Active Substance: ACETAMINOPHEN\ASPIRIN\CAFFEINE
     Indication: MIGRAINE
     Dosage: UNK

REACTIONS (2)
  - Product use issue [Unknown]
  - Oesophageal rupture [Unknown]

NARRATIVE: CASE EVENT DATE: 2007
